FAERS Safety Report 8245486-X (Version None)
Quarter: 2012Q1

REPORT INFORMATION
  Report Type: 
  Country: None (occurrence: None)
  Receive Date: 20120329
  Receipt Date: 20120320
  Transmission Date: 20120608
  Serious: Yes (Other)
  Sender: FDA-Public Use
  Company Number: TH-ASTRAZENECA-2012SE18915

PATIENT

DRUGS (2)
  1. MEROPENEM [Suspect]
     Route: 042
  2. VALPROIC ACID [Interacting]
     Route: 065

REACTIONS (3)
  - DRUG INTERACTION [None]
  - CONVULSION [None]
  - DRUG LEVEL DECREASED [None]
